FAERS Safety Report 6683267-9 (Version None)
Quarter: 2010Q2

REPORT INFORMATION
  Report Type: 
  Country: None (occurrence: None)
  Receive Date: 20100415
  Receipt Date: 20100406
  Transmission Date: 20101027
  Serious: Yes (Life-Threatening, Hospitalization, Other)
  Sender: FDA-Public Use
  Company Number: NL-JNJFOC-20100101634

PATIENT
  Age: 43 Year
  Sex: Male

DRUGS (5)
  1. REMICADE [Suspect]
     Indication: COLITIS ULCERATIVE
     Dosage: RECEIVED DOSES AT WEEKS 0, 2, 6 THEN 8 WEEKS LATER
     Route: 042
  2. MESALAZINE [Concomitant]
  3. BECLOMETHASONE DIPROPIONATE [Concomitant]
  4. AZATHIOPRINE [Concomitant]
  5. ASACOL [Concomitant]

REACTIONS (2)
  - MAJOR DEPRESSION [None]
  - SUICIDE ATTEMPT [None]
